FAERS Safety Report 6505009-X (Version None)
Quarter: 2009Q4

REPORT INFORMATION
  Report Type: 
  Country: None (occurrence: None)
  Receive Date: 20091218
  Receipt Date: 20091207
  Transmission Date: 20100525
  Serious: Yes (Hospitalization, Other)
  Sender: FDA-Public Use
  Company Number: US-BAYER-200915966NA

PATIENT
  Age: 73 Year
  Sex: Female
  Weight: 57 kg

DRUGS (9)
  1. BETAPACE [Suspect]
     Indication: ATRIAL FIBRILLATION
     Dosage: TOTAL DAILY DOSE: 240 MG  UNIT DOSE: 120 MG
     Route: 048
     Dates: start: 20090202, end: 20090219
  2. ASPIRIN [Concomitant]
     Dates: start: 20090122, end: 20090201
  3. ASPIRIN [Concomitant]
     Dates: start: 20090119, end: 20090121
  4. ASPIRIN [Concomitant]
     Dates: start: 20090202
  5. CARTIA XT [Concomitant]
     Dates: start: 20090119
  6. CLOPIDOGREL [Concomitant]
     Dates: start: 20090119, end: 20090129
  7. LYRICA [Concomitant]
     Dates: start: 20080428
  8. METOPROLOL TARTRATE [Concomitant]
     Dates: start: 20060301, end: 20090202
  9. ZYDONE [Concomitant]
     Dates: start: 20040101

REACTIONS (3)
  - ATRIAL FIBRILLATION [None]
  - BRONCHOSPASM [None]
  - DYSPNOEA [None]
